FAERS Safety Report 5350386-9 (Version None)
Quarter: 2007Q2

REPORT INFORMATION
  Report Type: 
  Country: None (occurrence: None)
  Receive Date: 20070606
  Receipt Date: 20070606
  Transmission Date: 20071010
  Serious: No
  Sender: FDA-Public Use
  Company Number: None

PATIENT
  Age: 60 Year
  Sex: Male
  Weight: 76.5 kg

DRUGS (12)
  1. CLOZAPINE [Suspect]
     Indication: SCHIZOPHRENIA, PARANOID TYPE
     Dosage: 325MG TWICE/DAY ORAL
     Route: 048
  2. ACETAMINOPHEN [Concomitant]
  3. LORATADINE [Concomitant]
  4. BUPROPION HYDROCHLORIDE [Concomitant]
  5. IBUPROFEN [Concomitant]
  6. SIMVASTATIN [Concomitant]
  7. METOPROLOL SUCCINATE [Concomitant]
  8. OMEPRAZOLE [Concomitant]
  9. HYDROCHLOROTHIAZIDE [Concomitant]
  10. AMITRIPTYLINE HCL [Concomitant]
  11. RISPERIDONE [Concomitant]
  12. ASPIRIN [Concomitant]

REACTIONS (1)
  - LEUKOCYTOSIS [None]
